FAERS Safety Report 12561774 (Version 1)
Quarter: 2016Q3

REPORT INFORMATION
  Report Type: Spontaneous
  Country: US (occurrence: US)
  Receive Date: 20160715
  Receipt Date: 20160715
  Transmission Date: 20161109
  Serious: Yes (Other)
  Sender: FDA-Public Use
  Company Number: US-NOVOPROD-500467

PATIENT
  Age: 66 Year
  Sex: Female
  Weight: 86.17 kg

DRUGS (4)
  1. LEVOTHYROXINE. [Concomitant]
     Active Substance: LEVOTHYROXINE
     Indication: HYPOTHYROIDISM
     Dosage: 75 ?G, QD
  2. VICTOZA [Suspect]
     Active Substance: LIRAGLUTIDE
     Indication: TYPE 2 DIABETES MELLITUS
     Dosage: 0.6 MG, QD
     Route: 058
     Dates: start: 201604, end: 2016
  3. VICTOZA [Suspect]
     Active Substance: LIRAGLUTIDE
     Dosage: 1.2 MG, QD
     Route: 058
     Dates: start: 2016
  4. VICTOZA [Suspect]
     Active Substance: LIRAGLUTIDE
     Dosage: 0.6 MG, QD
     Route: 058
     Dates: start: 2016, end: 20160706

REACTIONS (8)
  - Headache [Recovered/Resolved]
  - Dyspepsia [Recovered/Resolved]
  - Off label use [Unknown]
  - Diarrhoea [Recovered/Resolved]
  - Asthma [Not Recovered/Not Resolved]
  - Abdominal pain upper [Recovered/Resolved]
  - Nausea [Recovered/Resolved]
  - Upper respiratory tract infection [Not Recovered/Not Resolved]

NARRATIVE: CASE EVENT DATE: 2016
